FAERS Safety Report 21672035 (Version 1)
Quarter: 2022Q4

REPORT INFORMATION
  Report Type: Spontaneous
  Country: US (occurrence: US)
  Receive Date: 20221202
  Receipt Date: 20221202
  Transmission Date: 20230113
  Serious: Yes (Death, Other)
  Sender: FDA-Public Use
  Company Number: US-SA-SAC20221014002046

PATIENT
  Age: 73 Year
  Sex: Male

DRUGS (1)
  1. KEVZARA [Suspect]
     Active Substance: SARILUMAB
     Indication: Rheumatoid arthritis
     Dosage: 200 MG FREQUENCY: OTHER
     Route: 058
     Dates: start: 202210, end: 20221005

REACTIONS (1)
  - Lung neoplasm malignant [Fatal]
